FAERS Safety Report 5724401-4 (Version None)
Quarter: 2008Q2

REPORT INFORMATION
  Report Type: 
  Country: None (occurrence: None)
  Receive Date: 20080429
  Receipt Date: 20080417
  Transmission Date: 20081010
  Serious: Yes (Life-Threatening, Disabling)
  Sender: FDA-Public Use
  Company Number: WAES 0712USA08485

PATIENT
  Age: 52 Year
  Sex: Male

DRUGS (8)
  1. COZAAR [Suspect]
     Indication: HYPERTENSION
     Dosage: 50 MG/BID PO
     Route: 048
     Dates: start: 20070511, end: 20071213
  2. ADALAT [Concomitant]
  3. CONIEL [Concomitant]
  4. FLUITRAN [Concomitant]
  5. LASIX [Concomitant]
  6. NOVORAPID [Concomitant]
  7. PERDIPINE [Concomitant]
  8. BETAXOLOL HCL [Concomitant]

REACTIONS (5)
  - CARDIAC FAILURE [None]
  - DIALYSIS [None]
  - HYPERKALAEMIA [None]
  - RENAL IMPAIRMENT [None]
  - TREATMENT NONCOMPLIANCE [None]
